FAERS Safety Report 4809383-1 (Version None)
Quarter: 2005Q4

REPORT INFORMATION
  Report Type: 
  Country: None (occurrence: None)
  Receive Date: 20051018
  Receipt Date: 20051005
  Transmission Date: 20060501
  Serious: Yes (Other)
  Sender: FDA-Public Use
  Company Number: 200511853BBE

PATIENT
  Age: 9 Year
  Sex: Male

DRUGS (1)
  1. GAMUNEX [Suspect]
     Dosage: 12.5 MG, TOTAL DAILY

REACTIONS (4)
  - CREPITATIONS [None]
  - HEADACHE [None]
  - LETHARGY [None]
  - NAUSEA [None]
